FAERS Safety Report 6976308-2 (Version None)
Quarter: 2010Q3

REPORT INFORMATION
  Report Type: 
  Country: None (occurrence: None)
  Receive Date: 20100910
  Receipt Date: 20100909
  Transmission Date: 20110219
  Serious: Yes (Death)
  Sender: FDA-Public Use
  Company Number: DE-SANOFI-AVENTIS-2010SA054011

PATIENT
  Age: 72 Year
  Sex: Female
  Weight: 87.2 kg

DRUGS (6)
  1. TAXOTERE [Suspect]
     Route: 041
     Dates: start: 20100419, end: 20100419
  2. TAXOTERE [Suspect]
     Route: 041
     Dates: start: 20100726, end: 20100726
  3. TRASTUZUMAB [Suspect]
     Route: 041
     Dates: start: 20100419, end: 20100419
  4. TRASTUZUMAB [Suspect]
     Route: 041
     Dates: start: 20100726, end: 20100726
  5. CORTICOSTEROIDS [Concomitant]
     Indication: PREMEDICATION
     Dates: start: 20100419, end: 20100726
  6. ANTIEMETICS AND ANTINAUSEANTS [Concomitant]
     Indication: PREMEDICATION
     Dates: start: 20100419, end: 20100726

REACTIONS (1)
  - DEATH [None]
